FAERS Safety Report 10601033 (Version 2)
Quarter: 2014Q4

REPORT INFORMATION
  Report Type: Report from Study
  Country: DE (occurrence: DE)
  Receive Date: 20141124
  Receipt Date: 20141204
  Transmission Date: 20150529
  Serious: Yes (Hospitalization)
  Sender: FDA-Public Use
  Company Number: PHHY2014DE151410

PATIENT
  Age: 61 Year
  Sex: Female

DRUGS (2)
  1. SANDOSTATIN LAR DEPOT [Suspect]
     Active Substance: OCTREOTIDE ACETATE
     Indication: OFF LABEL USE
     Dosage: 30 MG, EVERY 14 DAYS
     Route: 030
     Dates: start: 20141117
  2. SANDOSTATIN LAR DEPOT [Suspect]
     Active Substance: OCTREOTIDE ACETATE
     Indication: DUMPING SYNDROME
     Dosage: 20 MG, EVERY 14 DAYS
     Route: 030
     Dates: start: 20130320, end: 20141116

REACTIONS (1)
  - Shock hypoglycaemic [Recovered/Resolved]

NARRATIVE: CASE EVENT DATE: 20141112
